FAERS Safety Report 7507996-X (Version None)
Quarter: 2011Q2

REPORT INFORMATION
  Report Type: 
  Country: None (occurrence: None)
  Receive Date: 20110527
  Receipt Date: 20110520
  Transmission Date: 20111010
  Serious: Yes (Hospitalization)
  Sender: FDA-Public Use
  Company Number: US-US-EMD SERONO, INC.-7061160

PATIENT
  Sex: Female

DRUGS (1)
  1. REBIF [Suspect]
     Indication: MULTIPLE SCLEROSIS
     Route: 058
     Dates: start: 20100720

REACTIONS (5)
  - STAPHYLOCOCCAL INFECTION [None]
  - MYALGIA [None]
  - INJECTION SITE PAIN [None]
  - CELLULITIS [None]
  - INFLUENZA LIKE ILLNESS [None]
